FAERS Safety Report 7238018-6 (Version None)
Quarter: 2011Q1

REPORT INFORMATION
  Report Type: 
  Country: None (occurrence: None)
  Receive Date: 20110121
  Receipt Date: 20110114
  Transmission Date: 20110831
  Serious: Yes (Hospitalization)
  Sender: FDA-Public Use
  Company Number: A0906205A

PATIENT
  Age: 69 Year
  Sex: Female

DRUGS (4)
  1. COREG [Suspect]
     Route: 048
     Dates: start: 20080601, end: 20080603
  2. ESTROGENIC SUBSTANCE [Concomitant]
  3. METFORMIN [Concomitant]
  4. WATER PILL [Concomitant]

REACTIONS (2)
  - PALPITATIONS [None]
  - BLOOD PRESSURE ABNORMAL [None]
